FAERS Safety Report 10563931 (Version 1)
Quarter: 2014Q4

REPORT INFORMATION
  Report Type: Spontaneous
  Country: BR (occurrence: BR)
  Receive Date: 20141104
  Receipt Date: 20141104
  Transmission Date: 20150529
  Serious: Yes (Other)
  Sender: FDA-Public Use
  Company Number: BR-ASTRAZENECA-2014SE81975

PATIENT
  Age: 22906 Day
  Sex: Male
  Weight: 98 kg

DRUGS (2)
  1. NEXIUM [Suspect]
     Active Substance: ESOMEPRAZOLE MAGNESIUM
     Indication: GASTROOESOPHAGEAL REFLUX DISEASE
     Route: 048
  2. ASPIRINA PREVENT [Concomitant]
     Active Substance: ASPIRIN
     Route: 048
     Dates: end: 201408

REACTIONS (1)
  - Myocardial infarction [Recovered/Resolved]

NARRATIVE: CASE EVENT DATE: 20140823
